FAERS Safety Report 9330536 (Version 1)
Quarter: 2013Q2

REPORT INFORMATION
  Report Type: Spontaneous
  Country: US (occurrence: None)
  Receive Date: 20130604
  Receipt Date: 20130604
  Transmission Date: 20140414
  Serious: No
  Sender: FDA-Public Use
  Company Number: None

PATIENT
  Age: 21 Year
  Sex: Male

DRUGS (2)
  1. LEVETIRACST 100 MG/ML [Suspect]
     Indication: EPILEPSY
     Dosage: 1 TAB BID PO
     Dates: start: 20090206
  2. LEVETIRACST 100 MG/ML [Suspect]
     Indication: GRAND MAL CONVULSION
     Dosage: 1 TAB BID PO
     Dates: start: 20090206

REACTIONS (4)
  - Convulsion [None]
  - Condition aggravated [None]
  - Product substitution issue [None]
  - Abnormal behaviour [None]
